FAERS Safety Report 8792031 (Version 2)
Quarter: 2012Q4

REPORT INFORMATION
  Report Type: 
  Country: US (occurrence: US)
  Receive Date: 20120918
  Receipt Date: 20120925
  Transmission Date: 20130627
  Serious: Yes (Other)
  Sender: FDA-Public Use
  Company Number: US-PFIZER INC-2012228154

PATIENT
  Age: 74 Year
  Sex: Female
  Weight: 68.03 kg

DRUGS (3)
  1. LYRICA [Suspect]
     Indication: FIBROMYALGIA
     Dosage: 75 mg, 1x/day
     Route: 048
     Dates: start: 200811, end: 2008
  2. LYRICA [Suspect]
     Dosage: 100 mg, 1x/day
     Route: 048
     Dates: start: 2008
  3. LODINE [Concomitant]
     Indication: ARTHRITIS
     Dosage: UNK

REACTIONS (5)
  - Balance disorder [Not Recovered/Not Resolved]
  - Gait disturbance [Not Recovered/Not Resolved]
  - Paraesthesia [Not Recovered/Not Resolved]
  - Pain [Not Recovered/Not Resolved]
  - Burning sensation [Not Recovered/Not Resolved]
